FAERS Safety Report 21121837 (Version 1)
Quarter: 2022Q3

REPORT INFORMATION
  Report Type: Report from Study
  Country: DE (occurrence: DE)
  Receive Date: 20220722
  Receipt Date: 20220722
  Transmission Date: 20221027
  Serious: Yes (Other)
  Sender: FDA-Public Use
  Company Number: DE-LEO Pharma-344167

PATIENT
  Sex: Female

DRUGS (2)
  1. BRODALUMAB [Suspect]
     Active Substance: BRODALUMAB
     Indication: Psoriasis
     Dosage: PRE-FILLED SYRINGE
     Route: 058
     Dates: start: 20200717, end: 20220623
  2. TALTZ [Suspect]
     Active Substance: IXEKIZUMAB
     Indication: Psoriasis
     Dosage: PRE-FILLED SYRINGE
     Route: 058
     Dates: start: 20220707

REACTIONS (1)
  - Maternal exposure via partner during pregnancy [Not Recovered/Not Resolved]

NARRATIVE: CASE EVENT DATE: 20220417
